FAERS Safety Report 24652355 (Version 2)
Quarter: 2025Q2

REPORT INFORMATION
  Report Type: Report from Study
  Country: US (occurrence: US)
  Receive Date: 20241122
  Receipt Date: 20250506
  Transmission Date: 20250716
  Serious: No
  Sender: AMGEN
  Company Number: US-AMGEN-USASP2024227186

PATIENT
  Age: 61 Year
  Sex: Female

DRUGS (2)
  1. KRYSTEXXA [Suspect]
     Active Substance: PEGLOTICASE
     Indication: Gouty tophus
     Dosage: UNK, Q2WK (EVERY TWO WEEKS) (FIRST INFUSION)
     Route: 040
     Dates: start: 20240328
  2. KRYSTEXXA [Suspect]
     Active Substance: PEGLOTICASE
     Dosage: UNK, Q2WK (EVERY TWO WEEKS)
     Route: 040
     Dates: start: 20241114

REACTIONS (4)
  - Oropharyngeal discomfort [Unknown]
  - Glossodynia [Unknown]
  - Tongue discolouration [Unknown]
  - Fatigue [Unknown]

NARRATIVE: CASE EVENT DATE: 20240101
